FAERS Safety Report 4892530-3 (Version None)
Quarter: 2006Q1

REPORT INFORMATION
  Report Type: 
  Country: None (occurrence: None)
  Receive Date: 20060126
  Receipt Date: 20060116
  Transmission Date: 20060701
  Serious: Yes (Other)
  Sender: FDA-Public Use
  Company Number: PHBS2006JP01076

PATIENT

DRUGS (2)
  1. VOLTAREN [Suspect]
     Indication: ANALGESIC THERAPY
     Route: 054
  2. PENICILLIN [Concomitant]

REACTIONS (3)
  - BLOOD CREATINE PHOSPHOKINASE INCREASED [None]
  - DYSURIA [None]
  - RHABDOMYOLYSIS [None]
